FAERS Safety Report 9199593 (Version 2)
Quarter: 2014Q1

REPORT INFORMATION
  Report Type: Spontaneous
  Country: US (occurrence: US)
  Receive Date: 20130329
  Receipt Date: 20140107
  Transmission Date: 20141002
  Serious: No
  Sender: FDA-Public Use
  Company Number: US-GLAXOSMITHKLINE-A1009635A

PATIENT
  Age: 53 Year
  Sex: Female

DRUGS (8)
  1. BENLYSTA [Suspect]
     Indication: SYSTEMIC LUPUS ERYTHEMATOSUS
     Dosage: 640MG EVERY TWO WEEKS
     Route: 042
     Dates: start: 201212
  2. LEVOTHYROXINE [Concomitant]
  3. HALCION [Concomitant]
  4. ATIVAN [Concomitant]
  5. FOLIC ACID [Concomitant]
  6. FLEXERIL [Concomitant]
  7. NUCYNTA [Concomitant]
  8. PAIN MEDICATION [Concomitant]

REACTIONS (9)
  - Fatigue [Not Recovered/Not Resolved]
  - Constipation [Not Recovered/Not Resolved]
  - Sneezing [Not Recovered/Not Resolved]
  - Oropharyngeal pain [Not Recovered/Not Resolved]
  - Nasopharyngitis [Not Recovered/Not Resolved]
  - Heart rate increased [Recovered/Resolved]
  - Blood pressure increased [Recovered/Resolved]
  - Dizziness [Not Recovered/Not Resolved]
  - Tachycardia [Not Recovered/Not Resolved]
